FAERS Safety Report 5926833-8 (Version None)
Quarter: 2008Q4

REPORT INFORMATION
  Report Type: 
  Country: None (occurrence: None)
  Receive Date: 20081022
  Receipt Date: 20081014
  Transmission Date: 20090506
  Serious: Yes (Other)
  Sender: FDA-Public Use
  Company Number: DE-BRISTOL-MYERS SQUIBB COMPANY-14374318

PATIENT
  Age: 69 Year
  Sex: Female
  Weight: 51 kg

DRUGS (9)
  1. CETUXIMAB [Suspect]
     Indication: COLORECTAL CANCER
     Route: 042
  2. IRINOTECAN HCL [Suspect]
     Indication: COLORECTAL CANCER
     Dosage: THERAPY STARTED ON 27-JUN-2008.
     Route: 042
     Dates: start: 20081002, end: 20081002
  3. FOLINIC ACID [Suspect]
     Indication: COLORECTAL CANCER
     Dosage: THERAPY STARTED ON 27-JUN-2008.
     Route: 042
     Dates: start: 20081002, end: 20081002
  4. FLUOROURACIL [Suspect]
     Indication: COLORECTAL CANCER
     Dosage: THERAPY STARTED ON 27-JUN-2008.
     Route: 042
     Dates: start: 20081002, end: 20081002
  5. LOPERAMIDE HCL [Concomitant]
     Dosage: 1 DOSAGEFORM = 4 X 2 (UNITS NOT MENTIONED)
  6. PANTOZOL [Concomitant]
     Dosage: 1 DOSAGEFORM = 20 (UNITS NOT MENTIONED)
  7. EUTHYROX [Concomitant]
     Dosage: 1 DOSAGEFORM = 100 (UNITS NOT MENTIONED)
  8. ASPIRIN [Concomitant]
  9. METOCLOPRAMIDE [Concomitant]

REACTIONS (3)
  - DIARRHOEA [None]
  - SYNCOPE [None]
  - VOMITING [None]
